FAERS Safety Report 10386489 (Version 2)
Quarter: 2014Q3

REPORT INFORMATION
  Report Type: Spontaneous
  Country: JP (occurrence: JP)
  Receive Date: 20140815
  Receipt Date: 20140901
  Transmission Date: 20150326
  Serious: Yes (Other)
  Sender: FDA-Public Use
  Company Number: JP-AMGEN-JPNSP2014062332

PATIENT
  Age: 73 Year
  Sex: Female

DRUGS (8)
  1. VECTIBIX [Suspect]
     Active Substance: PANITUMUMAB
     Indication: COLON CANCER
     Dosage: UNK
     Route: 041
  2. IRINOTECAN HYDROCHLORIDE. [Concomitant]
     Active Substance: IRINOTECAN HYDROCHLORIDE
     Indication: COLON CANCER
     Dosage: UNK
     Route: 041
  3. IRINOTECAN HYDROCHLORIDE. [Concomitant]
     Active Substance: IRINOTECAN HYDROCHLORIDE
     Indication: METASTASES TO LIVER
  4. FLUOROURACIL. [Concomitant]
     Active Substance: FLUOROURACIL
     Indication: COLON CANCER
     Dosage: UNK
     Route: 042
  5. CALCIUM LEVOFOLINATE [Concomitant]
     Active Substance: LEVOLEUCOVORIN CALCIUM
     Indication: METASTASES TO LIVER
  6. VECTIBIX [Suspect]
     Active Substance: PANITUMUMAB
     Indication: METASTASES TO LIVER
     Dosage: UNK
     Route: 041
     Dates: start: 20110802, end: 20110927
  7. FLUOROURACIL. [Concomitant]
     Active Substance: FLUOROURACIL
     Indication: METASTASES TO LIVER
  8. CALCIUM LEVOFOLINATE [Concomitant]
     Active Substance: LEVOLEUCOVORIN CALCIUM
     Indication: COLON CANCER
     Dosage: UNK
     Route: 041

REACTIONS (1)
  - Bone marrow failure [Unknown]
